FAERS Safety Report 11190331 (Version 2)
Quarter: 2015Q3

REPORT INFORMATION
  Report Type: Spontaneous
  Country: US (occurrence: US)
  Receive Date: 20150615
  Receipt Date: 20150821
  Transmission Date: 20151125
  Serious: Yes (Life-Threatening, Hospitalization, Other)
  Sender: FDA-Public Use
  Company Number: US-ELI_LILLY_AND_COMPANY-US201506001406

PATIENT
  Sex: Male

DRUGS (12)
  1. AXIRON [Suspect]
     Active Substance: TESTOSTERONE
     Indication: ANDROGEN DEFICIENCY
     Dosage: UNK, UNKNOWN
     Route: 065
     Dates: start: 201206, end: 20130121
  2. DABIGATRAN [Concomitant]
     Active Substance: DABIGATRAN
     Dosage: UNK, UNKNOWN
  3. ANDROGEL [Suspect]
     Active Substance: TESTOSTERONE
     Indication: ANDROGEN DEFICIENCY
     Dosage: UNK, UNKNOWN
     Route: 065
     Dates: start: 20051017, end: 20120731
  4. DIGOXIN. [Concomitant]
     Active Substance: DIGOXIN
     Dosage: UNK, UNKNOWN
  5. DILTIAZEM [Concomitant]
     Active Substance: DILTIAZEM
     Dosage: UNK, UNKNOWN
  6. HYDROCHLOROTHIAZIDE. [Concomitant]
     Active Substance: HYDROCHLOROTHIAZIDE
     Dosage: UNK, UNKNOWN
  7. LEVOTHYROXINE. [Concomitant]
     Active Substance: LEVOTHYROXINE
     Dosage: UNK, UNKNOWN
  8. TESTIM [Suspect]
     Active Substance: TESTOSTERONE
     Indication: ANDROGEN DEFICIENCY
     Dosage: UNK UNK, UNKNOWN
     Route: 065
     Dates: start: 20030109, end: 20051017
  9. TRADJENTA [Concomitant]
     Active Substance: LINAGLIPTIN
     Dosage: UNK, UNKNOWN
  10. ALFUZOSIN [Concomitant]
     Active Substance: ALFUZOSIN
     Dosage: UNK, UNKNOWN
  11. FENOFIBRATE. [Concomitant]
     Active Substance: FENOFIBRATE
     Dosage: UNK, UNKNOWN
  12. GLIMEPIR [Concomitant]
     Dosage: UNK, UNKNOWN

REACTIONS (9)
  - Arrhythmia [Unknown]
  - Cerebrovascular accident [Not Recovered/Not Resolved]
  - Cardiomyopathy [Unknown]
  - Cardiac arrest [Not Recovered/Not Resolved]
  - Respiratory arrest [Recovered/Resolved]
  - Coronary artery disease [Unknown]
  - Conduction disorder [Unknown]
  - Laryngeal oedema [Unknown]
  - Meningioma [Unknown]

NARRATIVE: CASE EVENT DATE: 2013
